FAERS Safety Report 24051034 (Version 3)
Quarter: 2024Q4

REPORT INFORMATION
  Report Type: Spontaneous
  Country: US (occurrence: US)
  Receive Date: 20240704
  Receipt Date: 20241211
  Transmission Date: 20250115
  Serious: No
  Sender: SANOFI AVENTIS
  Company Number: US-SA-SAC20240625000889

PATIENT
  Sex: Male
  Weight: 69.8 kg

DRUGS (4)
  1. DUPIXENT [Suspect]
     Active Substance: DUPILUMAB
     Indication: Dermatitis atopic
     Dosage: 300 MG, QOW
     Route: 058
     Dates: start: 2022
  2. GLYBURIDE [Concomitant]
     Active Substance: GLYBURIDE
     Dosage: UNK
  3. VITAMIN K2 (MK 7) WITH NATTOKINASE [Concomitant]
     Dosage: UNK
  4. VITAMIN D3 [Concomitant]
     Active Substance: CHOLECALCIFEROL

REACTIONS (3)
  - Dyspepsia [Unknown]
  - Vision blurred [Unknown]
  - Arthralgia [Unknown]
